FAERS Safety Report 9970320 (Version 1)
Quarter: 2014Q1

REPORT INFORMATION
  Report Type: Spontaneous
  Country: US (occurrence: None)
  Receive Date: 20140304
  Receipt Date: 20140304
  Transmission Date: 20141002
  Serious: Yes (Death, Other)
  Sender: FDA-Public Use
  Company Number: 2014P1001506

PATIENT
  Age: 75 Year
  Sex: Male

DRUGS (6)
  1. MYORISAN 10 MG [Suspect]
     Indication: ACNE
     Route: 048
     Dates: start: 20130129
  2. SPIRIVA [Concomitant]
  3. FLOMAX [Concomitant]
  4. SINGULAIR [Concomitant]
  5. ZYRTEC [Concomitant]
  6. ADVIL [Concomitant]

REACTIONS (1)
  - Neoplasm malignant [None]
